FAERS Safety Report 11037392 (Version 2)
Quarter: 2015Q2

REPORT INFORMATION
  Report Type: Report from Study
  Country: US (occurrence: US)
  Receive Date: 20150416
  Receipt Date: 20150416
  Transmission Date: 20150821
  Serious: Yes (Hospitalization, Other)
  Sender: FDA-Public Use
  Company Number: US-BAYER-2015-050999

PATIENT
  Age: 21 Year
  Sex: Male

DRUGS (2)
  1. NEXAVAR [Suspect]
     Active Substance: SORAFENIB
     Indication: ACUTE MYELOID LEUKAEMIA
     Dosage: 400 MG, BID
     Route: 048
     Dates: start: 20150224, end: 20150309
  2. NEXAVAR [Suspect]
     Active Substance: SORAFENIB
     Indication: ACUTE MYELOID LEUKAEMIA
     Dosage: 400 MG, BID
     Route: 048
     Dates: start: 20150325, end: 20150326

REACTIONS (8)
  - Skin exfoliation [None]
  - Feeling hot [None]
  - Heart rate increased [Recovered/Resolved]
  - Product use issue [None]
  - Rash erythematous [Recovered/Resolved]
  - Rash [Not Recovered/Not Resolved]
  - Hypersensitivity [None]
  - Generalised erythema [None]

NARRATIVE: CASE EVENT DATE: 20150226
